FAERS Safety Report 7913018-9 (Version None)
Quarter: 2011Q4

REPORT INFORMATION
  Report Type: 
  Country: None (occurrence: None)
  Receive Date: 20111114
  Receipt Date: 20111107
  Transmission Date: 20120403
  Serious: Yes (Other)
  Sender: FDA-Public Use
  Company Number: US-ASTRAZENECA-2011SE18449

PATIENT
  Age: 73 Year
  Sex: Female

DRUGS (2)
  1. CRESTOR [Suspect]
     Route: 048
  2. RHINOCORT [Suspect]
     Route: 045

REACTIONS (1)
  - MUSCULOSKELETAL DISCOMFORT [None]
